FAERS Safety Report 4465304-5 (Version None)
Quarter: 2004Q3

REPORT INFORMATION
  Report Type: 
  Country: None (occurrence: None)
  Receive Date: 20040929
  Receipt Date: 20040916
  Transmission Date: 20050211
  Serious: Yes (Hospitalization, Disabling, Other)
  Sender: FDA-Public Use
  Company Number: 2004049995

PATIENT
  Age: 51 Year
  Sex: Female

DRUGS (7)
  1. LIPITOR [Suspect]
     Indication: HYPERLIPIDAEMIA
     Dates: start: 20020101, end: 20040501
  2. PAROXETINE HCL [Concomitant]
  3. LISINOPRIL [Concomitant]
  4. INSULIN GLARGINE (INSULIN GLARGINE) [Concomitant]
  5. AMLODIPINE BESYLATE [Concomitant]
  6. FAMOTIDINE [Concomitant]
  7. PREDNISONE [Concomitant]

REACTIONS (14)
  - ADENOVIRUS INFECTION [None]
  - CARDIAC ENZYMES INCREASED [None]
  - DRUG INEFFECTIVE [None]
  - ECHO VIRUS INFECTION [None]
  - HAEMOLYTIC ANAEMIA [None]
  - HYPOTENSION [None]
  - PNEUMONIA ASPIRATION [None]
  - PULMONARY EMBOLISM [None]
  - RASH [None]
  - RESPIRATORY FAILURE [None]
  - RHABDOMYOLYSIS [None]
  - URINARY TRACT INFECTION FUNGAL [None]
  - VIRAL MYOSITIS [None]
  - VIRUS SEROLOGY TEST POSITIVE [None]
